FAERS Safety Report 6442554-X (Version None)
Quarter: 2009Q4

REPORT INFORMATION
  Report Type: 
  Country: None (occurrence: None)
  Receive Date: 20091112
  Receipt Date: 20091105
  Transmission Date: 20100525
  Serious: Yes (Death)
  Sender: FDA-Public Use
  Company Number: CERZ-1000956

PATIENT
  Sex: Female

DRUGS (1)
  1. CEREZYME [Suspect]
     Indication: GAUCHER'S DISEASE
     Dosage: 200 U, UNK, INTRAVENOUS
     Route: 042

REACTIONS (2)
  - DISEASE PROGRESSION [None]
  - GAUCHER'S DISEASE [None]
